FAERS Safety Report 15945411 (Version 1)
Quarter: 2019Q1

REPORT INFORMATION
  Report Type: Spontaneous
  Country: US (occurrence: US)
  Receive Date: 20190211
  Receipt Date: 20190211
  Transmission Date: 20190417
  Serious: No
  Sender: FDA-Public Use
  Company Number: US-SA-2019SA033897

PATIENT
  Sex: Female

DRUGS (1)
  1. TOUJEO [Suspect]
     Active Substance: INSULIN GLARGINE
     Indication: DIABETES MELLITUS
     Dosage: EVERY NIGHT
     Route: 065

REACTIONS (6)
  - Product use issue [Unknown]
  - Glycosylated haemoglobin increased [Unknown]
  - Throat irritation [Unknown]
  - Rash [Unknown]
  - Erythema [Unknown]
  - Vulvovaginal pruritus [Unknown]
